FAERS Safety Report 23495824 (Version 2)
Quarter: 2024Q2

REPORT INFORMATION
  Report Type: Report from Study
  Country: CO (occurrence: CO)
  Receive Date: 20240207
  Receipt Date: 20240409
  Transmission Date: 20240716
  Serious: Yes (Other)
  Sender: FDA-Public Use
  Company Number: CO-ASTELLAS-2024US003638

PATIENT
  Age: 38 Year
  Sex: Female

DRUGS (2)
  1. TACROLIMUS [Suspect]
     Active Substance: TACROLIMUS
     Indication: Renal transplant
     Route: 048
     Dates: start: 20111109
  2. TACROLIMUS [Suspect]
     Active Substance: TACROLIMUS
     Dosage: 10 MG, ONCE DAILY (TWO CAPSULES OF 5 MG OR 1 CAPSULE OF 5 MG AND 5 CAPSULES OF 1 MG)
     Route: 048

REACTIONS (3)
  - Secondary immunodeficiency [Recovering/Resolving]
  - Immunosuppressant drug level decreased [Recovering/Resolving]
  - Viral infection [Recovering/Resolving]
